FAERS Safety Report 16557302 (Version 2)
Quarter: 2019Q3

REPORT INFORMATION
  Report Type: Spontaneous
  Country: JP (occurrence: JP)
  Receive Date: 20190711
  Receipt Date: 20190805
  Transmission Date: 20191004
  Serious: Yes (Hospitalization, Other)
  Sender: FDA-Public Use
  Company Number: JP-PFIZER INC-2018476790

PATIENT
  Age: 45 Year
  Sex: Male

DRUGS (11)
  1. RISPERDAL [Concomitant]
     Active Substance: RISPERIDONE
     Indication: SCHIZOPHRENIA
     Dosage: 1 MG, 2X/DAY
     Route: 048
     Dates: start: 20180416
  2. GABAPEN [Suspect]
     Active Substance: GABAPENTIN
     Indication: EPILEPSY
     Dosage: 200 MG, 2X/DAY
     Route: 048
     Dates: start: 20180416
  3. E KEPPRA [Concomitant]
     Active Substance: LEVETIRACETAM
     Indication: EPILEPSY
     Dosage: 4 DF, DAILY (1.5 T, 1 T, 1.5 T; THREE TIMES DAILY)
     Route: 048
     Dates: start: 20180416
  4. SEROQUEL [Concomitant]
     Active Substance: QUETIAPINE FUMARATE
     Indication: SCHIZOPHRENIA
     Dosage: 25 MG, 1X/DAY
     Route: 048
     Dates: start: 20180416
  5. FYCOMPA [Concomitant]
     Active Substance: PERAMPANEL
     Indication: EPILEPSY
     Dosage: 12 MG, 1X/DAY
     Route: 048
     Dates: start: 20180416
  6. GABAPEN [Suspect]
     Active Substance: GABAPENTIN
     Dosage: 400 MG, 3X/DAY
     Route: 048
     Dates: start: 20181203, end: 20181209
  7. GABAPEN [Suspect]
     Active Substance: GABAPENTIN
     Dosage: 2000 MG, UNK(ONE DOSE WAS FROM 400 MG TO 800 MG)
     Route: 048
     Dates: start: 20190107
  8. GABAPEN [Suspect]
     Active Substance: GABAPENTIN
     Dosage: 1600 MG, DAILY (ONE DOSE WAS FROM 400 MG TO 800 MG)
     Route: 048
     Dates: start: 20181210, end: 20190106
  9. GABAPEN [Suspect]
     Active Substance: GABAPENTIN
     Dosage: 400 MG, 2X/DAY
     Route: 048
     Dates: start: 20181112, end: 20181203
  10. DEPAKENE-R [Concomitant]
     Active Substance: VALPROATE SODIUM
     Indication: EPILEPSY
     Dosage: 2 TABLETS, 3X/DAY
     Route: 048
     Dates: start: 20180416
  11. LAMICTAL [Concomitant]
     Active Substance: LAMOTRIGINE
     Indication: EPILEPSY
     Dosage: 100 MG, 2X/DAY
     Route: 048
     Dates: start: 20180416

REACTIONS (9)
  - Cataract traumatic [Recovered/Resolved with Sequelae]
  - Injury [Unknown]
  - Retinopathy proliferative [Recovered/Resolved with Sequelae]
  - Fall [Unknown]
  - Swelling of eyelid [Recovered/Resolved]
  - Diplopia [Recovered/Resolved]
  - Eye disorder [Recovered/Resolved with Sequelae]
  - Fracture [Unknown]
  - Eye injury [Unknown]

NARRATIVE: CASE EVENT DATE: 20181119
